FAERS Safety Report 8836025 (Version 1)
Quarter: 2012Q4

REPORT INFORMATION
  Report Type: 
  Country: US (occurrence: US)
  Receive Date: 20121011
  Receipt Date: 20121011
  Transmission Date: 20130627
  Serious: No
  Sender: FDA-Public Use
  Company Number: US-009507513-1210USA001106

PATIENT
  Sex: Male

DRUGS (6)
  1. JANUMET [Suspect]
     Route: 048
  2. NIASPAN [Suspect]
  3. DIOVAN HCT [Concomitant]
  4. FELODIPINE [Concomitant]
  5. ALLOPURINOL [Concomitant]
  6. LOVAZA [Concomitant]

REACTIONS (3)
  - Blood pressure increased [Unknown]
  - Headache [Unknown]
  - Sinus headache [Unknown]
